FAERS Safety Report 19887299 (Version 4)
Quarter: 2023Q2

REPORT INFORMATION
  Report Type: Report from Study
  Country: JP (occurrence: JP)
  Receive Date: 20210927
  Receipt Date: 20230602
  Transmission Date: 20230721
  Serious: Yes (Other)
  Sender: FDA-Public Use
  Company Number: JP-AMGEN-JPNNI2021144237

PATIENT
  Age: 49 Year
  Sex: Female
  Weight: 54.8 kg

DRUGS (13)
  1. APREMILAST [Suspect]
     Active Substance: APREMILAST
     Indication: Behcet^s syndrome
     Dosage: 10 MILLIGRAM, BID
     Route: 048
     Dates: start: 20210318
  2. APREMILAST [Suspect]
     Active Substance: APREMILAST
     Indication: Mouth ulceration
     Dosage: 20 MILLIGRAM, BID
     Route: 048
     Dates: start: 20210319, end: 20210319
  3. APREMILAST [Suspect]
     Active Substance: APREMILAST
     Dosage: 30 MILLIGRAM, BID
     Route: 048
     Dates: start: 20210320, end: 20210320
  4. APREMILAST [Suspect]
     Active Substance: APREMILAST
     Dosage: 40 MILLIGRAM, BID
     Route: 048
     Dates: start: 20210321, end: 20210321
  5. APREMILAST [Suspect]
     Active Substance: APREMILAST
     Dosage: 50 MILLIGRAM, BID
     Route: 048
     Dates: start: 20210322, end: 20210322
  6. APREMILAST [Suspect]
     Active Substance: APREMILAST
     Dosage: 60 MILLIGRAM, BID
     Route: 048
     Dates: start: 20210323
  7. HUMIRA [Concomitant]
     Active Substance: ADALIMUMAB
     Indication: Ileal ulcer
     Dosage: 40 MILLIGRAM, QD
     Dates: end: 20210415
  8. COLCHICINE [Concomitant]
     Active Substance: COLCHICINE
     Indication: Aphthous ulcer
     Dosage: 1 MILLIGRAM, QD
     Route: 048
  9. BILASTINE [Concomitant]
     Active Substance: BILASTINE
     Indication: Prophylaxis
     Dosage: 20 MILLIGRAM, QD
     Route: 048
     Dates: end: 20210415
  10. VONOPRAZAN FUMARATE [Concomitant]
     Active Substance: VONOPRAZAN FUMARATE
     Indication: Prophylaxis
     Dosage: 10 MILLIGRAM, QD
     Route: 048
  11. POTASSIUM ASPARTATE [Concomitant]
     Active Substance: POTASSIUM ASPARTATE
     Dosage: 900 MILLIGRAM, QD
     Route: 048
  12. LOXOPROFEN SODIUM DIHYDRATE [Concomitant]
     Active Substance: LOXOPROFEN SODIUM DIHYDRATE
     Indication: Arthritis
     Dosage: 120 MILLIGRAM, QD
     Route: 048
  13. KETOPROFEN [Concomitant]
     Active Substance: KETOPROFEN
     Indication: Arthritis
     Dosage: UNK

REACTIONS (2)
  - Meniere^s disease [Recovering/Resolving]
  - Stomatitis [Recovering/Resolving]

NARRATIVE: CASE EVENT DATE: 20210520
